FAERS Safety Report 9863240 (Version 1)
Quarter: 2014Q1

REPORT INFORMATION
  Report Type: Spontaneous
  Country: US (occurrence: US)
  Receive Date: 20140203
  Receipt Date: 20140203
  Transmission Date: 20141002
  Serious: No
  Sender: FDA-Public Use
  Company Number: US-TARO-2013P1006551

PATIENT
  Sex: Female

DRUGS (1)
  1. MOMETASONE FUROATE CREAM USP 0.1% [Suspect]
     Indication: ROSACEA
     Route: 061
     Dates: start: 2012, end: 20130301

REACTIONS (2)
  - Rash [Not Recovered/Not Resolved]
  - Expired drug administered [Recovered/Resolved]
